FAERS Safety Report 4279689-6 (Version None)
Quarter: 2004Q1

REPORT INFORMATION
  Report Type: 
  Country: None (occurrence: None)
  Receive Date: 20040123
  Receipt Date: 20040108
  Transmission Date: 20041129
  Serious: Yes (Hospitalization)
  Sender: FDA-Public Use
  Company Number: 22793(0)

PATIENT
  Age: 62 Year
  Sex: Female

DRUGS (3)
  1. TAMBOCOR [Suspect]
  2. INFLIXIMAB [Suspect]
  3. IMURAN [Suspect]

REACTIONS (1)
  - PANCYTOPENIA [None]
